FAERS Safety Report 25014909 (Version 1)
Quarter: 2025Q1

REPORT INFORMATION
  Report Type: Spontaneous
  Country: AE (occurrence: AE)
  Receive Date: 20250226
  Receipt Date: 20250226
  Transmission Date: 20250409
  Serious: Yes (Death)
  Sender: NOVARTIS
  Company Number: AE-002147023-NVSC2025AE032704

PATIENT
  Age: 55 Year
  Sex: Male
  Weight: 81 kg

DRUGS (1)
  1. ENTRESTO [Suspect]
     Active Substance: SACUBITRIL\VALSARTAN
     Indication: Heart failure with reduced ejection fraction
     Dosage: 1 DOSAGE FORM, QD
     Route: 048
     Dates: start: 20240920

REACTIONS (2)
  - Ventricular tachycardia [Fatal]
  - Illness [Unknown]

NARRATIVE: CASE EVENT DATE: 20241208
